FAERS Safety Report 12701098 (Version 1)
Quarter: 2016Q3

REPORT INFORMATION
  Report Type: Spontaneous
  Country: US (occurrence: US)
  Receive Date: 20160831
  Receipt Date: 20160831
  Transmission Date: 20161109
  Serious: Yes (Other)
  Sender: FDA-Public Use
  Company Number: US-CIPLA LTD.-2016US17718

PATIENT

DRUGS (1)
  1. BUPROPION. [Suspect]
     Active Substance: BUPROPION
     Dosage: 1200 MG/D DIVIDED, EVERY 2 TO 3 HRS
     Route: 042

REACTIONS (2)
  - Drug abuse [Unknown]
  - Agitation [Unknown]
